FAERS Safety Report 26095123 (Version 2)
Quarter: 2025Q4

REPORT INFORMATION
  Report Type: Spontaneous
  Country: GB (occurrence: GB)
  Receive Date: 20251127
  Receipt Date: 20251229
  Transmission Date: 20260118
  Serious: Yes (Disabling, Other)
  Sender: ALKEM
  Company Number: None

PATIENT
  Age: 66 Year
  Sex: Female
  Weight: 70 kg

DRUGS (1)
  1. FOSFOMYCIN [Suspect]
     Active Substance: FOSFOMYCIN
     Indication: Urinary tract infection
     Dosage: UNK
     Route: 065

REACTIONS (10)
  - Skin exfoliation [Unknown]
  - Swelling of eyelid [Unknown]
  - Malaise [Unknown]
  - Peripheral swelling [Unknown]
  - Rash erythematous [Unknown]
  - Abdominal pain upper [Recovering/Resolving]
  - Abdominal pain upper [Unknown]
  - Medication error [Unknown]
  - Feeding disorder [Unknown]
  - Bladder discomfort [Recovered/Resolved]

NARRATIVE: CASE EVENT DATE: 20240919
